FAERS Safety Report 6704417 (Version 2)
Quarter: 2018Q4

REPORT INFORMATION
  Report Type: Spontaneous
  Country: GB (occurrence: GB)
  Receive Date: 20080721
  Receipt Date: 20181224
  Transmission Date: 20190205
  Serious: Yes (Other)
  Sender: FDA-Public Use
  Company Number: GB-RANBAXY-2008RR-16425

PATIENT

DRUGS (1)
  1. FLUCONAZOLE 100MG CAPSULES [Suspect]
     Active Substance: FLUCONAZOLE
     Dosage: 50 MG, QD

REACTIONS (1)
  - Costochondritis [Unknown]
